FAERS Safety Report 5527838-1 (Version None)
Quarter: 2007Q4

REPORT INFORMATION
  Report Type: 
  Country: None (occurrence: None)
  Receive Date: 20071128
  Receipt Date: 20071119
  Transmission Date: 20080405
  Serious: Yes (Hospitalization)
  Sender: FDA-Public Use
  Company Number: US-ELI_LILLY_AND_COMPANY-US200711004501

PATIENT
  Sex: Female
  Weight: 104.31 kg

DRUGS (4)
  1. BYETTA [Suspect]
     Indication: GLUCOSE TOLERANCE IMPAIRED
     Dosage: 5 UG, DAILY (1/D)
     Route: 058
     Dates: start: 20070801, end: 20070101
  2. BYETTA [Suspect]
     Dosage: 5 UG, 2/D
     Route: 058
     Dates: start: 20070101, end: 20071106
  3. DIOVAN [Concomitant]
     Indication: HYPERTENSION
     Dosage: UNK, UNKNOWN
  4. WELLBUTRIN [Concomitant]
     Dosage: UNK, UNKNOWN
     Dates: end: 20071106

REACTIONS (3)
  - CHOLELITHIASIS [None]
  - PANCREATITIS [None]
  - WEIGHT DECREASED [None]
